FAERS Safety Report 23923667 (Version 1)
Quarter: 2024Q2

REPORT INFORMATION
  Report Type: Spontaneous
  Country: US (occurrence: US)
  Receive Date: 20240531
  Receipt Date: 20240531
  Transmission Date: 20240716
  Serious: Yes (Hospitalization, Other)
  Sender: FDA-Public Use
  Company Number: US-SUN PHARMACEUTICAL INDUSTRIES LTD-2024R1-448695

PATIENT
  Age: 41 Year
  Sex: Male

DRUGS (1)
  1. LITHIUM [Suspect]
     Active Substance: LITHIUM
     Indication: Schizophrenia
     Dosage: UNK
     Route: 065

REACTIONS (2)
  - Hyponatraemia [Unknown]
  - Nephrogenic diabetes insipidus [Unknown]
